FAERS Safety Report 15689981 (Version 3)
Quarter: 2018Q4

REPORT INFORMATION
  Report Type: Spontaneous
  Country: NZ (occurrence: NZ)
  Receive Date: 20181205
  Receipt Date: 20181227
  Transmission Date: 20190205
  Serious: Yes (Life-Threatening, Hospitalization, Other)
  Sender: FDA-Public Use
  Company Number: NZ-PFIZER INC-2018492559

PATIENT
  Age: 25 Year
  Sex: Male

DRUGS (3)
  1. CLOBAZAM. [Concomitant]
     Active Substance: CLOBAZAM
  2. DILANTIN [Suspect]
     Active Substance: PHENYTOIN
  3. EPILIM [Concomitant]
     Active Substance: VALPROATE SODIUM

REACTIONS (6)
  - Drug level decreased [Unknown]
  - Cerebral palsy [Unknown]
  - Feeling abnormal [Unknown]
  - Gait disturbance [Unknown]
  - Seizure [Not Recovered/Not Resolved]
  - Disease recurrence [Not Recovered/Not Resolved]

NARRATIVE: CASE EVENT DATE: 20181121
